FAERS Safety Report 24686044 (Version 1)
Quarter: 2024Q4

REPORT INFORMATION
  Report Type: Spontaneous
  Country: US (occurrence: None)
  Receive Date: 20241127
  Receipt Date: 20241127
  Transmission Date: 20250115
  Serious: Yes (Hospitalization)
  Sender: Public
  Company Number: None

PATIENT
  Age: 68 Year
  Sex: Male

DRUGS (1)
  1. NUPLAZID [Suspect]
     Active Substance: PIMAVANSERIN TARTRATE
     Indication: Parkinson^s disease psychosis
     Dosage: FREQUENCY : DAILY;?
     Route: 048
     Dates: start: 20231214, end: 20241126

REACTIONS (4)
  - Nephrolithiasis [None]
  - Urinary tract infection [None]
  - Illness [None]
  - Therapy cessation [None]

NARRATIVE: CASE EVENT DATE: 20241106
